FAERS Safety Report 10585966 (Version 2)
Quarter: 2014Q4

REPORT INFORMATION
  Report Type: Spontaneous
  Country: FR (occurrence: FR)
  Receive Date: 20141114
  Receipt Date: 20141121
  Transmission Date: 20150529
  Serious: Yes (Hospitalization)
  Sender: FDA-Public Use
  Company Number: FR-ASTRAZENECA-2014SE84511

PATIENT
  Age: 70 Year
  Sex: Male

DRUGS (10)
  1. UVEDOSE [Concomitant]
     Active Substance: CHOLECALCIFEROL
  2. PERINDOPRIL [Concomitant]
     Active Substance: PERINDOPRIL
  3. INEXIUM [Suspect]
     Active Substance: ESOMEPRAZOLE
     Route: 048
     Dates: end: 20140107
  4. FUROSEMIDE. [Concomitant]
     Active Substance: FUROSEMIDE
  5. CORDARONE [Suspect]
     Active Substance: AMIODARONE HYDROCHLORIDE
     Indication: ATRIAL FIBRILLATION
     Route: 048
     Dates: start: 201312, end: 20140107
  6. CALCIPARINE [Suspect]
     Active Substance: HEPARIN CALCIUM
     Route: 058
     Dates: start: 201312, end: 20140107
  7. ALLOPURINOL. [Concomitant]
     Active Substance: ALLOPURINOL
  8. ALDACTONE [Concomitant]
     Active Substance: SPIRONOLACTONE
  9. CRESTOR [Concomitant]
     Active Substance: ROSUVASTATIN CALCIUM
  10. PREVISCAN [Concomitant]
     Active Substance: FLUINDIONE

REACTIONS (3)
  - Toxicity to various agents [Unknown]
  - Acute kidney injury [Unknown]
  - Thrombocytopenia [Recovered/Resolved]

NARRATIVE: CASE EVENT DATE: 20140107
